FAERS Safety Report 7518350-9 (Version None)
Quarter: 2011Q2

REPORT INFORMATION
  Report Type: 
  Country: None (occurrence: None)
  Receive Date: 20110602
  Receipt Date: 20091226
  Transmission Date: 20111010
  Serious: Yes (Hospitalization, Other)
  Sender: FDA-Public Use
  Company Number: US-BAYER-200943575NA

PATIENT
  Age: 61 Year
  Sex: Male
  Weight: 82.54 kg

DRUGS (15)
  1. VANCOMYCIN [Concomitant]
     Dosage: 1 GM, UNK
     Route: 042
     Dates: start: 19990408, end: 19990408
  2. EPHEDRINE SULFATE [Concomitant]
     Dosage: 50 MG, UNK
     Route: 042
     Dates: start: 19990408, end: 19990408
  3. TRASYLOL [Suspect]
     Indication: MITRAL VALVE REPLACEMENT
     Route: 042
     Dates: start: 19990408
  4. LOPRESSOR [Concomitant]
     Dosage: 25 MG, QD
     Route: 048
  5. HEPARIN [Concomitant]
     Dosage: 550 MG, UNK
     Route: 042
     Dates: start: 19990408, end: 19990408
  6. ZESTRIL [Concomitant]
     Dosage: 10 MG, QD
     Route: 048
  7. FENTANYL [Concomitant]
     Dosage: 60 CC, UNK
     Route: 042
     Dates: start: 19990408, end: 19990408
  8. VERSED [Concomitant]
     Dosage: 12 MG, UNK
     Route: 042
     Dates: start: 19990408, end: 19990408
  9. PROTAMINE SULFATE [Concomitant]
     Dosage: 550 MG, UNK
     Route: 042
     Dates: start: 19990408, end: 19990408
  10. VECURONIUM BROMIDE [Concomitant]
     Dosage: 10 MG, UNK
     Route: 042
     Dates: start: 19990408, end: 19990408
  11. MANNITOL [Concomitant]
     Dosage: 50 MG, UNK
     Route: 042
     Dates: start: 19990408, end: 19990408
  12. METHYLPREDNISOLONE [Concomitant]
     Dosage: 1 GM, UNK
     Route: 042
     Dates: start: 19990408, end: 19990408
  13. POTASSIUM CHLORIDE [Concomitant]
     Dosage: 10 MEQ, UNK
     Route: 042
     Dates: start: 19990408, end: 19990408
  14. CEFUROXIME [Concomitant]
     Dosage: 3 GM, UNK
     Route: 042
     Dates: start: 19990408, end: 19990408
  15. FAMOTIDINE [Concomitant]
     Dosage: 20 MG, UNK
     Route: 042
     Dates: start: 19990408, end: 19990408

REACTIONS (5)
  - CEREBROVASCULAR ACCIDENT [None]
  - UNEVALUABLE EVENT [None]
  - PAIN [None]
  - RENAL FAILURE [None]
  - INJURY [None]
